FAERS Safety Report 9285869 (Version 2)
Quarter: 2013Q3

REPORT INFORMATION
  Report Type: Spontaneous
  Country: FR (occurrence: FR)
  Receive Date: 20130513
  Receipt Date: 20130829
  Transmission Date: 20140515
  Serious: Yes (Hospitalization)
  Sender: FDA-Public Use
  Company Number: FR-PFIZER INC-2013142018

PATIENT
  Age: 78 Year
  Sex: Female

DRUGS (11)
  1. CELEBREX [Suspect]
     Dosage: 200 MG, 1X/DAY
     Route: 048
     Dates: end: 20130131
  2. FUROSEMIDE [Suspect]
     Dosage: UNK
     Route: 048
     Dates: end: 20130131
  3. TAREG [Suspect]
     Dosage: 80 MG, 1X/DAY
     Route: 048
     Dates: end: 20130131
  4. PARKINANE [Suspect]
     Dosage: 2 DF, 1X/DAY
     Route: 048
     Dates: end: 20130131
  5. PARACETAMOL [Suspect]
     Dosage: UNK
     Route: 048
     Dates: end: 20130131
  6. HEXAQUINE [Suspect]
     Dosage: UNK
     Route: 048
     Dates: end: 20130131
  7. LEVOTHYROX [Concomitant]
     Dosage: UNK
  8. ALDACTONE [Concomitant]
     Dosage: UNK
  9. AVLOCARDYL [Concomitant]
     Dosage: UNK
  10. JANUMET [Concomitant]
     Dosage: UNK
  11. STILNOX [Concomitant]
     Dosage: 10 MG, UNK

REACTIONS (2)
  - Renal failure [Recovered/Resolved]
  - Toxicity to various agents [Unknown]
